FAERS Safety Report 26091743 (Version 2)
Quarter: 2025Q4

REPORT INFORMATION
  Report Type: Report from Study
  Country: US (occurrence: US)
  Receive Date: 20251126
  Receipt Date: 20251223
  Transmission Date: 20260117
  Serious: Yes (Other)
  Sender: INSMED
  Company Number: US-INSMED-2025-05259-USAA

PATIENT
  Sex: Female

DRUGS (4)
  1. BRINSUPRI [Suspect]
     Active Substance: BRENSOCATIB
     Indication: Bronchiectasis
     Dosage: 25 MILLIGRAM, QD
     Route: 048
     Dates: start: 202510
  2. BACTRIM [Suspect]
     Active Substance: SULFAMETHOXAZOLE\TRIMETHOPRIM
     Indication: Sputum discoloured
     Dosage: UNK, UNK
     Route: 048
     Dates: start: 20251104, end: 20251108
  3. ACETAMINOPHEN\ASPIRIN\CAFFEINE [Concomitant]
     Active Substance: ACETAMINOPHEN\ASPIRIN\CAFFEINE
     Indication: Product used for unknown indication
     Dosage: UNK, UNK
     Route: 048
  4. LEVAQUIN [Concomitant]
     Active Substance: LEVOFLOXACIN
     Indication: Product used for unknown indication
     Dosage: 750 MILLIGRAM, UNK
     Route: 048
     Dates: start: 20251016

REACTIONS (34)
  - Pneumonia bacterial [Unknown]
  - Mycobacterium avium complex infection [Unknown]
  - Blood pressure fluctuation [Unknown]
  - Skin cancer [Not Recovered/Not Resolved]
  - Infective exacerbation of bronchiectasis [Recovered/Resolved]
  - Dyspnoea [Not Recovered/Not Resolved]
  - Eye irritation [Not Recovered/Not Resolved]
  - Ear discomfort [Not Recovered/Not Resolved]
  - Dizziness [Not Recovered/Not Resolved]
  - Nausea [Unknown]
  - Fatigue [Unknown]
  - Chills [Unknown]
  - Confusional state [Unknown]
  - Asthenia [Unknown]
  - Gait disturbance [Unknown]
  - Hypopnoea [Unknown]
  - Palpitations [Recovered/Resolved]
  - Muscle spasms [Unknown]
  - Visual impairment [Unknown]
  - Sputum discoloured [Not Recovered/Not Resolved]
  - Sputum abnormal [Unknown]
  - Respiratory disorder [Unknown]
  - Renal disorder [Not Recovered/Not Resolved]
  - Dental caries [Not Recovered/Not Resolved]
  - Hypertension [Not Recovered/Not Resolved]
  - Influenza [Unknown]
  - Hepatic enzyme abnormal [Not Recovered/Not Resolved]
  - Alopecia [Not Recovered/Not Resolved]
  - Skin hypertrophy [Not Recovered/Not Resolved]
  - Upper respiratory tract infection [Recovered/Resolved]
  - Headache [Recovered/Resolved]
  - Unevaluable event [Not Recovered/Not Resolved]
  - Product dose omission issue [Unknown]
  - Product dispensing error [Unknown]

NARRATIVE: CASE EVENT DATE: 20250101
